FAERS Safety Report 11251638 (Version 1)
Quarter: 2015Q3

REPORT INFORMATION
  Report Type: Spontaneous
  Country: US (occurrence: US)
  Receive Date: 20150708
  Receipt Date: 20150708
  Transmission Date: 20151125
  Serious: No
  Sender: FDA-Public Use
  Company Number: US-ELI_LILLY_AND_COMPANY-US201204009481

PATIENT
  Age: 18 Year
  Sex: Female

DRUGS (1)
  1. SYMBYAX [Suspect]
     Active Substance: FLUOXETINE HYDROCHLORIDE\OLANZAPINE
     Indication: ANXIETY DISORDER
     Dosage: 6 MG / 25 MG

REACTIONS (3)
  - Blood thyroid stimulating hormone increased [Unknown]
  - Weight increased [Unknown]
  - Off label use [Unknown]
